FAERS Safety Report 8367960-8 (Version None)
Quarter: 2012Q2

REPORT INFORMATION
  Report Type: 
  Country: None (occurrence: None)
  Receive Date: 20120517
  Receipt Date: 20120504
  Transmission Date: 20120825
  Serious: No
  Sender: FDA-Public Use
  Company Number: US-ASTRAZENECA-2012SE28993

PATIENT
  Age: 83 Year
  Sex: Male

DRUGS (1)
  1. SYMBICORT [Suspect]
     Indication: CHRONIC OBSTRUCTIVE PULMONARY DISEASE
     Dosage: 80/4.5 MCG, ONE PUFF TWO TIMES A DAY
     Route: 055
     Dates: end: 20120430

REACTIONS (5)
  - INTENTIONAL DRUG MISUSE [None]
  - OFF LABEL USE [None]
  - DYSPNOEA [None]
  - SPEECH DISORDER [None]
  - OVERDOSE [None]
